FAERS Safety Report 7562674-6 (Version None)
Quarter: 2011Q2

REPORT INFORMATION
  Report Type: 
  Country: None (occurrence: None)
  Receive Date: 20110615
  Receipt Date: 20110607
  Transmission Date: 20111010
  Serious: Yes (Hospitalization)
  Sender: FDA-Public Use
  Company Number: 2011SP026330

PATIENT
  Age: 67 Year
  Sex: Female

DRUGS (6)
  1. OLMESARTAN MEDOXOMIL [Concomitant]
  2. ZOLPIDEM [Concomitant]
  3. MIRTAZAPINE [Suspect]
     Indication: PRODUCT USED FOR UNKNOWN INDICATION
     Dosage: 15 MG; QD; PO
     Route: 048
     Dates: start: 20110301, end: 20110513
  4. HALOPERIDOL DECANOATE [Suspect]
     Indication: PRODUCT USED FOR UNKNOWN INDICATION
     Dosage: 250 MG; Q3W; IM
     Route: 030
     Dates: start: 20110414
  5. AKINETON [Concomitant]
  6. XANAX [Concomitant]

REACTIONS (5)
  - CONVULSION [None]
  - DYSKINESIA [None]
  - INAPPROPRIATE ANTIDIURETIC HORMONE SECRETION [None]
  - MALAISE [None]
  - GASTROINTESTINAL DISORDER [None]
